FAERS Safety Report 17986841 (Version 1)
Quarter: 2020Q3

REPORT INFORMATION
  Report Type: Report from Study
  Country: None (occurrence: BZ)
  Receive Date: 20200706
  Receipt Date: 20200706
  Transmission Date: 20201103
  Serious: Yes (Hospitalization, Other)
  Sender: FDA-Public Use
  Company Number: US-ABBVIE-20K-163-3462788-00

PATIENT
  Age: 58 Year
  Sex: Male

DRUGS (1)
  1. SKYRIZI [Suspect]
     Active Substance: RISANKIZUMAB-RZAA
     Indication: PSORIASIS
     Route: 058
     Dates: start: 201909, end: 202002

REACTIONS (8)
  - Shewanella algae bacteraemia [Recovering/Resolving]
  - Wound infection staphylococcal [Recovering/Resolving]
  - Cellulitis [Unknown]
  - Peripheral swelling [Unknown]
  - Vibrio vulnificus infection [Recovering/Resolving]
  - Blister infected [Unknown]
  - Necrotising fasciitis [Recovering/Resolving]
  - Blister [Unknown]

NARRATIVE: CASE EVENT DATE: 202001
